FAERS Safety Report 5009445-2 (Version None)
Quarter: 2006Q2

REPORT INFORMATION
  Report Type: 
  Country: None (occurrence: None)
  Receive Date: 20060522
  Receipt Date: 20060512
  Transmission Date: 20061013
  Serious: Yes (Hospitalization, Other)
  Sender: FDA-Public Use
  Company Number: 2006-01167

PATIENT
  Age: 70 Year
  Sex: Male
  Weight: 111.1 kg

DRUGS (5)
  1. VELCADE [Suspect]
     Indication: MULTIPLE MYELOMA
     Dosage: 1.30MG/M2 IV BOLUS
     Route: 040
     Dates: start: 20060417
  2. WARFARIN SODIUM [Concomitant]
  3. SIMVASTATIN [Concomitant]
  4. GLUCOSAMINE (GLUCOSAMINE) [Concomitant]
  5. PRILOSEC [Concomitant]

REACTIONS (2)
  - DEMYELINATION [None]
  - DYSARTHRIA [None]
